FAERS Safety Report 9155717 (Version 1)
Quarter: 2013Q1

REPORT INFORMATION
  Report Type: Spontaneous
  Country: GB (occurrence: GB)
  Receive Date: 20130311
  Receipt Date: 20130311
  Transmission Date: 20140127
  Serious: Yes (Disabling)
  Sender: FDA-Public Use
  Company Number: PHHY2013GB021967

PATIENT
  Age: 48 Year
  Sex: 0
  Weight: 40 kg

DRUGS (7)
  1. METHOTREXATE [Suspect]
     Indication: CROHN^S DISEASE
     Dosage: 15 MG
     Route: 048
     Dates: start: 20060207
  2. HUMIRA [Suspect]
     Indication: CROHN^S DISEASE
     Dosage: 40 MG
     Route: 030
     Dates: start: 20110707, end: 20130208
  3. PIRITON [Concomitant]
  4. HYDROCORTISONE [Concomitant]
  5. FOLIC ACID [Concomitant]
  6. ASACOL [Concomitant]
  7. LANSOPRAZOLE [Concomitant]

REACTIONS (3)
  - Injection site pain [Not Recovered/Not Resolved]
  - Injection site pruritus [Not Recovered/Not Resolved]
  - Injection site inflammation [Not Recovered/Not Resolved]
